FAERS Safety Report 8232046-X (Version None)
Quarter: 2012Q1

REPORT INFORMATION
  Report Type: 
  Country: None (occurrence: None)
  Receive Date: 20120321
  Receipt Date: 20120313
  Transmission Date: 20120608
  Serious: Yes (Other)
  Sender: FDA-Public Use
  Company Number: GER/GER/12/0023459

PATIENT
  Age: 29 Year
  Sex: Female

DRUGS (3)
  1. LAMOTRIGINE [Suspect]
     Indication: EPILEPSY
     Dosage: 700 MG, 1 IN 1 D, ORAL
     Route: 048
     Dates: start: 20091111, end: 20100811
  2. VIMPAT [Suspect]
     Indication: EPILEPSY
     Dosage: 200 MG, 1 IN 1 D, ORAL
     Route: 048
     Dates: start: 20091111, end: 20100811
  3. FOLSAURE (FOLIC ACID) [Concomitant]

REACTIONS (3)
  - CAESAREAN SECTION [None]
  - MATERNAL EXPOSURE DURING PREGNANCY [None]
  - GRAND MAL CONVULSION [None]
